FAERS Safety Report 9711723 (Version 1)
Quarter: 2013Q4

REPORT INFORMATION
  Report Type: Spontaneous
  Country: US (occurrence: US)
  Receive Date: 20131126
  Receipt Date: 20131126
  Transmission Date: 20140711
  Serious: No
  Sender: FDA-Public Use
  Company Number: US-BRISTOL-MYERS SQUIBB COMPANY-19103159

PATIENT
  Age: 53 Year
  Sex: Female
  Weight: 106.57 kg

DRUGS (7)
  1. BYDUREON [Suspect]
     Indication: TYPE 2 DIABETES MELLITUS
     Route: 058
     Dates: start: 201204
  2. METFORMIN HCL XR [Concomitant]
     Dosage: TAKE TWO 500MG  BID
  3. COPAXONE [Concomitant]
  4. NEXIUM [Concomitant]
  5. AZAPROPAZONE [Concomitant]
  6. AMARYL [Concomitant]
  7. PAXIL [Concomitant]

REACTIONS (3)
  - Injection site mass [Unknown]
  - Injection site haemorrhage [Unknown]
  - Injection site pruritus [Unknown]
